FAERS Safety Report 7729485-X (Version None)
Quarter: 2011Q3

REPORT INFORMATION
  Report Type: 
  Country: None (occurrence: None)
  Receive Date: 20110906
  Receipt Date: 20110820
  Transmission Date: 20111222
  Serious: No
  Sender: FDA-Public Use
  Company Number: US-JNJFOC-20110712246

PATIENT
  Sex: Male
  Weight: 90.72 kg

DRUGS (9)
  1. INVEGA SUSTENNA [Suspect]
     Indication: SCHIZOPHRENIA
     Route: 030
     Dates: start: 20110702
  2. INVEGA SUSTENNA [Suspect]
     Route: 030
     Dates: start: 20110701, end: 20110701
  3. ABILIFY [Concomitant]
     Route: 048
     Dates: end: 20110701
  4. INVEGA SUSTENNA [Suspect]
     Route: 030
     Dates: start: 20110701, end: 20110701
  5. INVEGA SUSTENNA [Suspect]
     Indication: BIPOLAR DISORDER
     Route: 030
     Dates: start: 20110702
  6. INVEGA SUSTENNA [Suspect]
     Indication: ASPERGER'S DISORDER
     Route: 030
     Dates: start: 20110702
  7. INVEGA SUSTENNA [Suspect]
     Route: 030
     Dates: start: 20110701, end: 20110701
  8. RISPERDAL [Concomitant]
     Route: 048
     Dates: end: 20110701
  9. WELLBUTRIN [Concomitant]
     Route: 048
     Dates: end: 20110701

REACTIONS (5)
  - HOSTILITY [None]
  - IMPULSIVE BEHAVIOUR [None]
  - AGGRESSION [None]
  - DISTURBANCE IN SOCIAL BEHAVIOUR [None]
  - HYPERSEXUALITY [None]
